FAERS Safety Report 9398644 (Version 2)
Quarter: 2013Q3

REPORT INFORMATION
  Report Type: Spontaneous
  Country: CH (occurrence: CH)
  Receive Date: 20130712
  Receipt Date: 20130725
  Transmission Date: 20140515
  Serious: Yes (Life-Threatening, Hospitalization, Other)
  Sender: FDA-Public Use
  Company Number: PHHY2013CH073785

PATIENT
  Age: 62 Year
  Sex: Male

DRUGS (4)
  1. ACENOCOUMAROL [Suspect]
     Indication: ATRIAL FIBRILLATION
     Dosage: 2 MG, DAILY
     Route: 048
  2. ACENOCOUMAROL [Interacting]
     Indication: PULMONARY EMBOLISM
  3. AMOXICILLIN+CLAVULANATE [Interacting]
     Indication: DERMO-HYPODERMITIS
  4. ANGIOTENSIN CONVERTING ENZYME BLOCKERS [Concomitant]
     Indication: HYPERTENSION

REACTIONS (6)
  - Arterial haemorrhage [Unknown]
  - Oesophageal varices haemorrhage [Unknown]
  - Sensorimotor disorder [Recovered/Resolved]
  - Anaemia [Recovered/Resolved]
  - International normalised ratio increased [Unknown]
  - Drug interaction [Unknown]
